FAERS Safety Report 13186735 (Version 2)
Quarter: 2017Q1

REPORT INFORMATION
  Report Type: Report from Study
  Country: None (occurrence: US)
  Receive Date: 20170205
  Receipt Date: 20170310
  Transmission Date: 20170428
  Serious: Yes (Hospitalization)
  Sender: FDA-Public Use
  Company Number: US-ABBVIE-17K-163-1855040-00

PATIENT
  Sex: Male
  Weight: 91.71 kg

DRUGS (3)
  1. HUMIRA [Suspect]
     Active Substance: ADALIMUMAB
     Indication: CROHN^S DISEASE
     Route: 058
     Dates: start: 2013
  2. PENTASA [Concomitant]
     Active Substance: MESALAMINE
     Indication: PRODUCT USED FOR UNKNOWN INDICATION
  3. ENTOCORT [Concomitant]
     Active Substance: BUDESONIDE
     Indication: PRODUCT USED FOR UNKNOWN INDICATION

REACTIONS (14)
  - Precancerous cells present [Unknown]
  - Post procedural haemorrhage [Unknown]
  - Loss of consciousness [Unknown]
  - Precancerous cells present [Unknown]
  - Post procedural haemorrhage [Unknown]
  - Diarrhoea [Unknown]
  - Precancerous cells present [Unknown]
  - Intestinal polyp [Unknown]
  - Post procedural haemorrhage [Unknown]
  - Gastrointestinal motility disorder [Unknown]
  - Intestinal polyp [Unknown]
  - Weight increased [Not Recovered/Not Resolved]
  - Intestinal stenosis [Unknown]
  - Drug level decreased [Unknown]

NARRATIVE: CASE EVENT DATE: 2013
